FAERS Safety Report 8589256-1 (Version None)
Quarter: 2012Q3

REPORT INFORMATION
  Report Type: 
  Country: None (occurrence: None)
  Receive Date: 20120813
  Receipt Date: 20120801
  Transmission Date: 20120928
  Serious: Yes (Hospitalization, Other)
  Sender: FDA-Public Use
  Company Number: US-JNJFOC-20120801240

PATIENT
  Sex: Male
  Weight: 61.24 kg

DRUGS (8)
  1. MORPHINE [Suspect]
     Indication: PAIN
     Route: 048
     Dates: start: 20080101
  2. PANCREAZE [Suspect]
     Dosage: 42000 UNITS CAPSULE/21000 UNIT 2 TABLET 4 TIMES DAILY
     Route: 048
     Dates: start: 20100401, end: 20120101
  3. DOCUSATE SODIUM [Concomitant]
     Indication: ABNORMAL FAECES
     Route: 048
     Dates: start: 20080101
  4. FAMOTIDINE [Concomitant]
     Indication: ANTACID THERAPY
     Route: 048
     Dates: start: 20100401
  5. PANCREAZE [Suspect]
     Indication: DYSPEPSIA
     Dosage: 42000 UNIT CAPSULE/21000/2 TABLET 5 TIMES DAILY
     Route: 048
     Dates: start: 20120101
  6. MORPHINE [Suspect]
     Dosage: 1-2 TABLETS EVERY 6 HOURS AS NEEDED
     Route: 048
     Dates: start: 20080101
  7. VALIUM [Concomitant]
     Indication: MUSCULOSKELETAL PAIN
     Route: 048
     Dates: start: 20080101
  8. VALIUM [Concomitant]
     Indication: ANXIETY
     Route: 048
     Dates: start: 20080101

REACTIONS (4)
  - SUICIDAL IDEATION [None]
  - ABDOMINAL PAIN [None]
  - DEPRESSION [None]
  - DRUG LEVEL BELOW THERAPEUTIC [None]
